FAERS Safety Report 8990053 (Version 2)
Quarter: 2013Q1

REPORT INFORMATION
  Report Type: Report from Study
  Country: US (occurrence: US)
  Receive Date: 20121228
  Receipt Date: 20130131
  Transmission Date: 20140127
  Serious: Yes (Hospitalization)
  Sender: FDA-Public Use
  Company Number: US-PFIZER INC-2012323576

PATIENT
  Age: 67 Year
  Sex: Male
  Weight: 82.28 kg

DRUGS (4)
  1. SUNITINIB MALATE [Suspect]
     Indication: SMALL CELL LUNG CANCER
     Dosage: 150 MG, ONCE DAILY, DAY 1
     Route: 048
     Dates: start: 20120830, end: 20120830
  2. SUNITINIB MALATE [Suspect]
     Dosage: 37.5 MG, ONCE DAILY, UNTIL PROGRESSION
     Route: 048
     Dates: start: 20120831
  3. SUNITINIB MALATE [Suspect]
     Dosage: 25 MG, ONCE DAILY
     Route: 048
     Dates: start: 20121015, end: 20121017
  4. SUNITINIB MALATE [Suspect]
     Dosage: 12.5 MG, ONCE DAILY
     Route: 048
     Dates: start: 20121030, end: 20121031

REACTIONS (2)
  - Colitis [Recovered/Resolved]
  - Diarrhoea [Recovered/Resolved]
